FAERS Safety Report 19193311 (Version 1)
Quarter: 2021Q2

REPORT INFORMATION
  Report Type: Spontaneous
  Country: PT (occurrence: PT)
  Receive Date: 20210428
  Receipt Date: 20210428
  Transmission Date: 20210717
  Serious: Yes (Other)
  Sender: FDA-Public Use
  Company Number: PT-ABBVIE-21K-130-3879515-00

PATIENT
  Age: 53 Year
  Sex: Female

DRUGS (14)
  1. DARUNAVIR [Suspect]
     Active Substance: DARUNAVIR
     Indication: HIV INFECTION
     Route: 048
     Dates: start: 2009
  2. EMTRICITABINE [Suspect]
     Active Substance: EMTRICITABINE
     Indication: HEPATITIS C
  3. DARUNAVIR [Suspect]
     Active Substance: DARUNAVIR
     Route: 048
     Dates: start: 201507
  4. RALTEGRAVIR. [Suspect]
     Active Substance: RALTEGRAVIR
     Indication: HEPATITIS C
  5. DARUNAVIR [Suspect]
     Active Substance: DARUNAVIR
     Route: 048
     Dates: start: 201605
  6. NEVIRAPINA [Suspect]
     Active Substance: NEVIRAPINE
     Indication: HIV INFECTION
     Route: 065
     Dates: start: 2010
  7. TENOFOVIR [Suspect]
     Active Substance: TENOFOVIR
     Indication: HEPATITIS C
     Route: 065
     Dates: start: 2010
  8. RITONAVIR. [Suspect]
     Active Substance: RITONAVIR
     Route: 065
     Dates: start: 201605
  9. RALTEGRAVIR. [Suspect]
     Active Substance: RALTEGRAVIR
     Indication: HIV INFECTION
     Route: 065
     Dates: start: 201507
  10. EMTRICITABINE [Suspect]
     Active Substance: EMTRICITABINE
     Indication: HIV INFECTION
     Route: 065
     Dates: start: 2010
  11. TENOFOVIR [Suspect]
     Active Substance: TENOFOVIR
     Indication: HIV INFECTION
  12. RITONAVIR. [Suspect]
     Active Substance: RITONAVIR
     Indication: HEPATITIS C
     Route: 065
     Dates: start: 2009
  13. DOLUTEGRAVIR [Suspect]
     Active Substance: DOLUTEGRAVIR
     Indication: HIV INFECTION
     Route: 065
     Dates: start: 201711
  14. DOLUTEGRAVIR [Suspect]
     Active Substance: DOLUTEGRAVIR
     Route: 065

REACTIONS (3)
  - Drug resistance [Unknown]
  - Product use issue [Unknown]
  - Off label use [Unknown]
